FAERS Safety Report 6230807-X (Version None)
Quarter: 2009Q2

REPORT INFORMATION
  Report Type: 
  Country: None (occurrence: None)
  Receive Date: 20090616
  Receipt Date: 20090611
  Transmission Date: 20091009
  Serious: Yes (Hospitalization)
  Sender: FDA-Public Use
  Company Number: US-JNJFOC-20090604312

PATIENT
  Sex: Female
  Weight: 79.38 kg

DRUGS (3)
  1. DURAGESIC-100 [Suspect]
     Indication: MIGRAINE
     Route: 062
  2. FIORICET [Concomitant]
     Indication: HEADACHE
     Dosage: 50-325-40 MG AS NEEDED
     Route: 048
  3. COUMADIN [Concomitant]
     Route: 048

REACTIONS (5)
  - DEVICE ADHESION ISSUE [None]
  - HEART RATE INCREASED [None]
  - MALAISE [None]
  - MITRAL VALVE DISEASE [None]
  - WRONG TECHNIQUE IN DRUG USAGE PROCESS [None]
